FAERS Safety Report 14675553 (Version 4)
Quarter: 2018Q2

REPORT INFORMATION
  Report Type: Spontaneous
  Country: FR (occurrence: FR)
  Receive Date: 20180323
  Receipt Date: 20180420
  Transmission Date: 20180711
  Serious: Yes (Hospitalization, Other)
  Sender: FDA-Public Use
  Company Number: FR-GLAXOSMITHKLINE-FR2017195896

PATIENT
  Age: 33 Year
  Sex: Male
  Weight: 61 kg

DRUGS (67)
  1. DIFFU K [Suspect]
     Active Substance: POTASSIUM CHLORIDE
     Indication: PRODUCT USED FOR UNKNOWN INDICATION
     Dosage: 1 DF, QD
     Route: 048
     Dates: start: 20160201, end: 20160201
  2. ATROVENT [Suspect]
     Active Substance: IPRATROPIUM BROMIDE
     Dosage: TIME TO ONSET: 4 DAY(S)
     Route: 055
  3. ATROVENT [Suspect]
     Active Substance: IPRATROPIUM BROMIDE
     Dosage: TIME TO ONSET: 4 DAY(S)
     Route: 055
  4. TEMODAL [Suspect]
     Active Substance: TEMOZOLOMIDE
     Indication: ASTROCYTOMA
     Dosage: 140 MG, QD
     Route: 048
     Dates: end: 20170105
  5. ESOMEPRAZOLE [Concomitant]
     Active Substance: ESOMEPRAZOLE
     Dosage: UNK
     Route: 048
  6. LEVETIRACETAM. [Concomitant]
     Active Substance: LEVETIRACETAM
     Route: 065
  7. URBANYL [Concomitant]
     Active Substance: CLOBAZAM
     Indication: PRODUCT USED FOR UNKNOWN INDICATION
     Dosage: 1 DF, QD
     Route: 048
  8. URBANYL [Concomitant]
     Active Substance: CLOBAZAM
     Route: 048
  9. LYRICA [Concomitant]
     Active Substance: PREGABALIN
     Route: 048
  10. AUGMENTIN [Concomitant]
     Active Substance: AMOXICILLIN\CLAVULANATE POTASSIUM
     Route: 065
  11. ESOMEPRAZOLE [Concomitant]
     Active Substance: ESOMEPRAZOLE
     Indication: PRODUCT USED FOR UNKNOWN INDICATION
     Dosage: UNK
     Route: 048
  12. ESOMEPRAZOLE [Concomitant]
     Active Substance: ESOMEPRAZOLE
     Route: 048
  13. ESOMEPRAZOLE [Concomitant]
     Active Substance: ESOMEPRAZOLE
     Route: 048
  14. URBANYL [Concomitant]
     Active Substance: CLOBAZAM
     Route: 048
  15. LYRICA [Concomitant]
     Active Substance: PREGABALIN
     Route: 048
  16. LYRICA [Concomitant]
     Active Substance: PREGABALIN
     Route: 048
  17. LAMALINE (ACETAMINOPHEN\CAFFEINE\OPIUM) [Concomitant]
     Active Substance: ACETAMINOPHEN\CAFFEINE\OPIUM
     Indication: PRODUCT USED FOR UNKNOWN INDICATION
     Dosage: 2 DF, QD
     Route: 065
     Dates: end: 20170201
  18. SOLUPRED (PREDNISOLONE) [Suspect]
     Active Substance: PREDNISOLONE
     Indication: RESPIRATORY DISORDER
     Dosage: 40 MG, QD
     Route: 048
     Dates: start: 20170128, end: 20170128
  19. AUGMENTIN [Concomitant]
     Active Substance: AMOXICILLIN\CLAVULANATE POTASSIUM
     Indication: PRODUCT USED FOR UNKNOWN INDICATION
     Dosage: UNK
     Route: 065
  20. AUGMENTIN [Concomitant]
     Active Substance: AMOXICILLIN\CLAVULANATE POTASSIUM
     Route: 065
  21. AUGMENTIN [Concomitant]
     Active Substance: AMOXICILLIN\CLAVULANATE POTASSIUM
     Route: 065
  22. AUGMENTIN [Concomitant]
     Active Substance: AMOXICILLIN\CLAVULANATE POTASSIUM
     Route: 065
  23. AUGMENTIN [Concomitant]
     Active Substance: AMOXICILLIN\CLAVULANATE POTASSIUM
     Route: 065
  24. ESOMEPRAZOLE [Concomitant]
     Active Substance: ESOMEPRAZOLE
     Dosage: UNK
     Route: 048
  25. LEVETIRACETAM. [Concomitant]
     Active Substance: LEVETIRACETAM
     Route: 065
  26. MEDROL [Concomitant]
     Active Substance: METHYLPREDNISOLONE
     Indication: PRODUCT USED FOR UNKNOWN INDICATION
     Route: 065
  27. MEDROL [Concomitant]
     Active Substance: METHYLPREDNISOLONE
     Route: 065
  28. MEDROL [Concomitant]
     Active Substance: METHYLPREDNISOLONE
     Route: 065
  29. LYRICA [Concomitant]
     Active Substance: PREGABALIN
     Route: 048
  30. ATROVENT [Suspect]
     Active Substance: IPRATROPIUM BROMIDE
     Dosage: TIME TO ONSET: 4 DAY(S)
     Route: 055
  31. ATROVENT [Suspect]
     Active Substance: IPRATROPIUM BROMIDE
     Dosage: UNK
     Route: 055
  32. ATROVENT [Suspect]
     Active Substance: IPRATROPIUM BROMIDE
     Dosage: TIME TO ONSET: 4 DAY(S)
     Route: 055
  33. AUGMENTIN [Concomitant]
     Active Substance: AMOXICILLIN\CLAVULANATE POTASSIUM
     Route: 065
  34. AUGMENTIN [Concomitant]
     Active Substance: AMOXICILLIN\CLAVULANATE POTASSIUM
     Route: 065
  35. AUGMENTIN [Concomitant]
     Active Substance: AMOXICILLIN\CLAVULANATE POTASSIUM
     Route: 065
  36. ESOMEPRAZOLE [Concomitant]
     Active Substance: ESOMEPRAZOLE
     Dosage: UNK
     Route: 048
  37. MEDROL [Concomitant]
     Active Substance: METHYLPREDNISOLONE
     Route: 065
  38. MEDROL [Concomitant]
     Active Substance: METHYLPREDNISOLONE
     Route: 065
  39. MEDROL [Concomitant]
     Active Substance: METHYLPREDNISOLONE
     Route: 065
  40. ATROVENT [Suspect]
     Active Substance: IPRATROPIUM BROMIDE
     Dosage: TIME TO ONSET: 4 DAY(S)
     Route: 055
  41. ATROVENT [Suspect]
     Active Substance: IPRATROPIUM BROMIDE
     Dosage: TIME TO ONSET: 4 DAY(S)
     Route: 055
  42. OFLOCET [Concomitant]
     Active Substance: OFLOXACIN
     Indication: PRODUCT USED FOR UNKNOWN INDICATION
     Dosage: 1 DF, QD
     Route: 031
     Dates: start: 20170128
  43. LEVETIRACETAM. [Concomitant]
     Active Substance: LEVETIRACETAM
     Indication: PRODUCT USED FOR UNKNOWN INDICATION
     Dosage: UNK
     Route: 065
  44. URBANYL [Concomitant]
     Active Substance: CLOBAZAM
     Route: 048
  45. MEDROL [Concomitant]
     Active Substance: METHYLPREDNISOLONE
     Route: 065
  46. LYRICA [Concomitant]
     Active Substance: PREGABALIN
     Indication: PRODUCT USED FOR UNKNOWN INDICATION
     Dosage: 100 MG, UNK
     Route: 048
  47. LYRICA [Concomitant]
     Active Substance: PREGABALIN
     Route: 048
  48. ATROVENT [Suspect]
     Active Substance: IPRATROPIUM BROMIDE
     Indication: RESPIRATORY DISORDER
     Dosage: TIME TO ONSET: 4 DAY(S)
     Route: 055
  49. SALBUTAMOL [Suspect]
     Active Substance: ALBUTEROL
     Indication: RESPIRATORY DISORDER
     Dosage: UNK
     Route: 055
  50. TEMODAL [Suspect]
     Active Substance: TEMOZOLOMIDE
     Dosage: UNK
     Route: 065
  51. ESOMEPRAZOLE [Concomitant]
     Active Substance: ESOMEPRAZOLE
     Dosage: UNK
     Route: 048
  52. URBANYL [Concomitant]
     Active Substance: CLOBAZAM
     Route: 048
  53. LYRICA [Concomitant]
     Active Substance: PREGABALIN
     Route: 048
  54. DIFFU K [Suspect]
     Active Substance: POTASSIUM CHLORIDE
     Dosage: 1 DF, QD
     Route: 048
     Dates: start: 20170201
  55. ATROVENT [Suspect]
     Active Substance: IPRATROPIUM BROMIDE
     Dosage: TIME TO ONSET: 4 DAY(S)
     Route: 055
  56. ROVAMYCINE [Suspect]
     Active Substance: SPIRAMYCIN
     Indication: PLEURISY
     Dosage: 1.5 IU, QD
     Route: 042
     Dates: start: 20170128, end: 20170201
  57. ESOMEPRAZOLE [Concomitant]
     Active Substance: ESOMEPRAZOLE
     Route: 048
  58. ESOMEPRAZOLE [Concomitant]
     Active Substance: ESOMEPRAZOLE
     Route: 048
  59. URBANYL [Concomitant]
     Active Substance: CLOBAZAM
     Route: 048
  60. URBANYL [Concomitant]
     Active Substance: CLOBAZAM
     Route: 048
  61. LYRICA [Concomitant]
     Active Substance: PREGABALIN
     Route: 048
  62. KEPPRA [Concomitant]
     Active Substance: LEVETIRACETAM
     Indication: PRODUCT USED FOR UNKNOWN INDICATION
     Dosage: 1000 MG, QD
     Route: 048
  63. KEPPRA [Concomitant]
     Active Substance: LEVETIRACETAM
     Dosage: 1000 MG, QD
     Route: 048
  64. URBANYL [Concomitant]
     Active Substance: CLOBAZAM
     Route: 048
  65. URBANYL [Concomitant]
     Active Substance: CLOBAZAM
     Route: 048
  66. MEDROL [Concomitant]
     Active Substance: METHYLPREDNISOLONE
     Route: 065
  67. LYRICA [Concomitant]
     Active Substance: PREGABALIN
     Route: 048

REACTIONS (2)
  - Hepatocellular injury [Recovered/Resolved]
  - Cholestasis [Not Recovered/Not Resolved]

NARRATIVE: CASE EVENT DATE: 20170201
